FAERS Safety Report 5498644-1 (Version None)
Quarter: 2007Q4

REPORT INFORMATION
  Report Type: 
  Country: None (occurrence: None)
  Receive Date: 20071024
  Receipt Date: 20071015
  Transmission Date: 20080405
  Serious: Yes (Death, Hospitalization)
  Sender: FDA-Public Use
  Company Number: 2007AL004348

PATIENT
  Age: 35 Year
  Sex: Male

DRUGS (11)
  1. TRAMADOL HCL [Suspect]
     Dosage: 100 MG;PRN;PO
     Route: 048
     Dates: end: 20071005
  2. FENTANYL TRANSDERMAL SYSTEM [Suspect]
     Dosage: 75 UG; TDER
     Route: 062
     Dates: end: 20071005
  3. DIAZEPAM [Concomitant]
  4. TEMAZEPAM [Concomitant]
  5. ACETAMINOPHEN [Concomitant]
  6. CYCLIZINE [Concomitant]
  7. CITALOPRAM HYDROBROMIDE [Concomitant]
  8. AMOXICILLIN [Concomitant]
  9. OMEPRAZOLE [Concomitant]
  10. BUSCOPAN [Concomitant]
  11. CARBAMAZEPINE [Concomitant]

REACTIONS (2)
  - HEPATIC ENCEPHALOPATHY [None]
  - OESOPHAGEAL VARICES HAEMORRHAGE [None]
